FAERS Safety Report 19720550 (Version 2)
Quarter: 2021Q3

REPORT INFORMATION
  Report Type: Spontaneous
  Country: FR (occurrence: FR)
  Receive Date: 20210819
  Receipt Date: 20210823
  Transmission Date: 20211014
  Serious: Yes (Death, Hospitalization, Other)
  Sender: FDA-Public Use
  Company Number: FR-MYLANLABS-2021M1050230

PATIENT
  Age: 13 Year
  Sex: Female
  Weight: 51 kg

DRUGS (3)
  1. PREVYMIS [Suspect]
     Active Substance: LETERMOVIR
     Indication: PRODUCT USED FOR UNKNOWN INDICATION
     Dosage: UNK
     Route: 042
     Dates: start: 20201114
  2. CICLOSPORIN [Suspect]
     Active Substance: CYCLOSPORINE
     Indication: PRODUCT USED FOR UNKNOWN INDICATION
     Dosage: UNK
  3. ACICLOVIR [Suspect]
     Active Substance: ACYCLOVIR
     Indication: PRODUCT USED FOR UNKNOWN INDICATION
     Dosage: UNK

REACTIONS (8)
  - Mucosal inflammation [Unknown]
  - Toxicity to various agents [Unknown]
  - Renal tubular necrosis [Unknown]
  - Renal failure [Unknown]
  - Cardiac arrest [Unknown]
  - Cerebral ischaemia [Fatal]
  - Cardio-respiratory arrest [Unknown]
  - Product use issue [Unknown]

NARRATIVE: CASE EVENT DATE: 2020
